FAERS Safety Report 19483114 (Version 1)
Quarter: 2021Q3

REPORT INFORMATION
  Report Type: Spontaneous
  Country: US (occurrence: US)
  Receive Date: 20210701
  Receipt Date: 20210701
  Transmission Date: 20211014
  Serious: No
  Sender: FDA-Public Use
  Company Number: US-TEVA-2021-US-1927979

PATIENT
  Age: 62 Year
  Sex: Male

DRUGS (1)
  1. EMTRICITABINE W/TENOFOVIR [Suspect]
     Active Substance: EMTRICITABINE\TENOFOVIR DISOPROXIL
     Dosage: STRENGTH: 200 / 300 MG
     Route: 065

REACTIONS (5)
  - Product contamination physical [Unknown]
  - Fear [Unknown]
  - Product colour issue [Unknown]
  - Poor quality product administered [Unknown]
  - Pain in extremity [Unknown]

NARRATIVE: CASE EVENT DATE: 202106
